FAERS Safety Report 17181318 (Version 1)
Quarter: 2019Q4

REPORT INFORMATION
  Report Type: Spontaneous
  Country: US (occurrence: US)
  Receive Date: 20191220
  Receipt Date: 20191220
  Transmission Date: 20200122
  Serious: Yes (Death, Life-Threatening, Disabling, Other)
  Sender: FDA-Public Use
  Company Number: US-BTG-201900261

PATIENT
  Age: 48 Year
  Sex: Male

DRUGS (8)
  1. CROFAB [Suspect]
     Active Substance: CROTALIDAE POLYVALENT IMMUNE FAB (OVINE)
     Indication: SNAKE BITE
     Dosage: ADDITIONAL 10 VIALS
     Route: 065
  2. SODIUM BICARBONATE DRIP [Concomitant]
     Indication: PRODUCT USED FOR UNKNOWN INDICATION
     Route: 065
  3. CROFAB [Suspect]
     Active Substance: CROTALIDAE POLYVALENT IMMUNE FAB (OVINE)
     Indication: SNAKE BITE
     Dosage: 6 VIALS
     Route: 065
  4. CROFAB [Suspect]
     Active Substance: CROTALIDAE POLYVALENT IMMUNE FAB (OVINE)
     Indication: SNAKE BITE
     Dosage: ADDITIONAL 10 VIALS
     Route: 065
  5. VASOPRESSORS [Concomitant]
     Active Substance: UNSPECIFIED INGREDIENT
     Indication: PRODUCT USED FOR UNKNOWN INDICATION
     Dosage: TREATMENT CYCLE 1 OF 2
     Route: 065
  6. VASOPRESSORS [Concomitant]
     Active Substance: UNSPECIFIED INGREDIENT
     Indication: PRODUCT USED FOR UNKNOWN INDICATION
     Dosage: TREATMENT CYCLE 2 OF 2
     Route: 065
  7. CROFAB [Suspect]
     Active Substance: CROTALIDAE POLYVALENT IMMUNE FAB (OVINE)
     Indication: SNAKE BITE
     Dosage: ADDITIONAL 10 VIALS
     Route: 065
  8. ANTIBIOTICS [Concomitant]
     Active Substance: UNSPECIFIED INGREDIENT
     Indication: PRODUCT USED FOR UNKNOWN INDICATION
     Route: 065

REACTIONS (14)
  - Movement disorder [Unknown]
  - Intestinal perforation [Unknown]
  - Multiple organ dysfunction syndrome [Fatal]
  - Shock haemorrhagic [Unknown]
  - Blood lactate dehydrogenase increased [Unknown]
  - Jaundice [Unknown]
  - Compartment syndrome [Unknown]
  - Finger amputation [Unknown]
  - Anuria [Unknown]
  - Nervous system disorder [Unknown]
  - Prothrombin time prolonged [Unknown]
  - Renal impairment [Unknown]
  - Blood creatine phosphokinase increased [Unknown]
  - International normalised ratio increased [Unknown]
